FAERS Safety Report 4797411-1 (Version None)
Quarter: 2005Q4

REPORT INFORMATION
  Report Type: 
  Country: None (occurrence: None)
  Receive Date: 20051011
  Receipt Date: 20051011
  Transmission Date: 20060501
  Serious: Yes (Other)
  Sender: FDA-Public Use
  Company Number: None

PATIENT
  Age: 48 Year
  Sex: Male
  Weight: 64.4 kg

DRUGS (1)
  1. EFAVIRENZ [Suspect]
     Indication: HIV INFECTION
     Dosage: 600MG,600MG HS, ORAL
     Route: 048
     Dates: start: 20050413, end: 20050713

REACTIONS (2)
  - DIZZINESS [None]
  - RASH [None]
